FAERS Safety Report 4662978-0 (Version None)
Quarter: 2005Q2

REPORT INFORMATION
  Report Type: 
  Country: None (occurrence: None)
  Receive Date: 20050511
  Receipt Date: 20050307
  Transmission Date: 20051028
  Serious: Yes (Hospitalization)
  Sender: FDA-Public Use
  Company Number: ZONI002123

PATIENT
  Age: 22 Year
  Sex: Female
  Weight: 47 kg

DRUGS (3)
  1. ZONEGRAN [Suspect]
     Indication: CONVULSION
     Dosage: 400 MG, 2 IN 1 D, ORAL
     Route: 048
  2. PHENYTOIN [Suspect]
     Indication: CONVULSION
     Dosage: ORAL
     Route: 048
     Dates: start: 20050207, end: 20050214
  3. GABAPENTIN [Concomitant]

REACTIONS (2)
  - CHOLELITHIASIS [None]
  - PANCREATITIS [None]
